FAERS Safety Report 10654366 (Version 2)
Quarter: 2015Q1

REPORT INFORMATION
  Report Type: Spontaneous
  Country: US (occurrence: US)
  Receive Date: 20141216
  Receipt Date: 20150123
  Transmission Date: 20150720
  Serious: Yes (Other)
  Sender: FDA-Public Use
  Company Number: US-GLAXOSMITHKLINE-US2014010437

PATIENT
  Sex: Male

DRUGS (6)
  1. ASPIRIN (BABY) [Concomitant]
  2. KLONOPIN [Concomitant]
     Active Substance: CLONAZEPAM
  3. XANAX [Concomitant]
     Active Substance: ALPRAZOLAM
  4. LOVAZA [Suspect]
     Active Substance: OMEGA-3-ACID ETHYL ESTERS
     Indication: HYPERLIPIDAEMIA
     Dosage: 2 G, BID
     Route: 048
     Dates: start: 2009
  5. MVI [Concomitant]
     Active Substance: VITAMINS
  6. PRAVASTATIN [Concomitant]
     Active Substance: PRAVASTATIN\PRAVASTATIN SODIUM

REACTIONS (6)
  - Osteonecrosis [Not Recovered/Not Resolved]
  - Surgery [Unknown]
  - Pain [Not Recovered/Not Resolved]
  - Sciatica [Not Recovered/Not Resolved]
  - Blood pressure increased [Recovering/Resolving]
  - Exercise tolerance decreased [Not Recovered/Not Resolved]

NARRATIVE: CASE EVENT DATE: 2012
